FAERS Safety Report 24042021 (Version 4)
Quarter: 2025Q3

REPORT INFORMATION
  Report Type: Report from Study
  Country: CA (occurrence: CA)
  Receive Date: 20240702
  Receipt Date: 20250910
  Transmission Date: 20251021
  Serious: Yes (Other)
  Sender: SANDOZ
  Company Number: CA-SANDOZ-SDZ2024CA037740

PATIENT
  Age: 61 Year
  Sex: Female

DRUGS (2)
  1. HYRIMOZ [Suspect]
     Active Substance: ADALIMUMAB-ADAZ
     Dosage: 40 MG, Q2W, ;EVERY TWO WEEKS
     Route: 058
     Dates: start: 20240618
  2. HYRIMOZ [Suspect]
     Active Substance: ADALIMUMAB-ADAZ
     Indication: Psoriatic arthropathy
     Dosage: 40MG EVERY OTHER WEEK;EVERY TWO WEEKS
     Route: 058

REACTIONS (12)
  - Psoriatic arthropathy [Unknown]
  - Induration [Unknown]
  - COVID-19 [Unknown]
  - Peripheral swelling [Unknown]
  - Dermatitis atopic [Unknown]
  - Fatigue [Unknown]
  - Viral infection [Unknown]
  - Cough [Unknown]
  - Pruritus [Unknown]
  - Rash [Unknown]
  - Product dose omission issue [Unknown]
  - Inappropriate schedule of product administration [Unknown]

NARRATIVE: CASE EVENT DATE: 20240401
